FAERS Safety Report 6384721-X (Version None)
Quarter: 2009Q3

REPORT INFORMATION
  Report Type: 
  Country: None (occurrence: None)
  Receive Date: 20090929
  Receipt Date: 20090916
  Transmission Date: 20100115
  Serious: No
  Sender: FDA-Public Use
  Company Number: B0593588A

PATIENT
  Age: 24 Month
  Sex: Female

DRUGS (6)
  1. BUSULPHAN TABLET (BUSULFAN) (GENERIC) [Suspect]
     Indication: BONE MARROW CONDITIONING REGIMEN
     Dosage: 4 MG/KG
  2. MELPHALAN HYDROCHLORIDE [Suspect]
     Indication: BONE MARROW CONDITIONING REGIMEN
     Dosage: 140 MG/M2
  3. ALEMTUZUMAB (ALEMTUZUMAB)(FORMULATION UNKNOWN) (GENERIC) [Suspect]
     Indication: PROPHYLAXIS AGAINST GRAFT VERSUS HOST DISEASE
     Dosage: 2 MG/PER DAY
  4. CYCLOPHOSPHAMIDE [Suspect]
     Indication: BONE MARROW CONDITIONING REGIMEN
     Dosage: 60 MG/KG
  5. METHOTREXATE [Suspect]
     Indication: PROPHYLAXIS AGAINST GRAFT VERSUS HOST DISEASE
  6. CYCLOSPORINE [Suspect]
     Indication: PROPHYLAXIS AGAINST GRAFT VERSUS HOST DISEASE

REACTIONS (2)
  - DRUG INEFFECTIVE [None]
  - GRAFT VERSUS HOST DISEASE [None]
